FAERS Safety Report 6498043-X (Version None)
Quarter: 2009Q4

REPORT INFORMATION
  Report Type: 
  Country: None (occurrence: None)
  Receive Date: 20091215
  Receipt Date: 20091210
  Transmission Date: 20100525
  Serious: Yes (Death, Other)
  Sender: FDA-Public Use
  Company Number: PHHY2009CA31951

PATIENT
  Sex: Male

DRUGS (2)
  1. SANDOSTATIN LAR [Suspect]
     Indication: ASCITES
     Dosage: 20 MG, EVERY 4 WEEKS
     Route: 030
     Dates: start: 20090727
  2. SANDOSTATIN LAR [Suspect]
     Indication: PROSTHESIS IMPLANTATION

REACTIONS (4)
  - BLOOD PRESSURE INCREASED [None]
  - DEATH [None]
  - DYSPNOEA [None]
  - INSOMNIA [None]
